FAERS Safety Report 5781528-9 (Version None)
Quarter: 2008Q2

REPORT INFORMATION
  Report Type: 
  Country: None (occurrence: None)
  Receive Date: 20080623
  Receipt Date: 20060613
  Transmission Date: 20081010
  Serious: Yes (Other)
  Sender: FDA-Public Use
  Company Number: BR-BAYER-200815027LA

PATIENT
  Age: 56 Year
  Sex: Female

DRUGS (7)
  1. BETAFERON [Suspect]
     Indication: MULTIPLE SCLEROSIS
     Dosage: UNIT DOSE: 8 MIU
     Route: 058
     Dates: start: 19960101
  2. TEGRETOL [Concomitant]
     Indication: MULTIPLE SCLEROSIS
     Dosage: UNIT DOSE: 400 MG
     Route: 048
     Dates: start: 19920101
  3. TRYPTANOL [Concomitant]
     Indication: NERVOUS SYSTEM DISORDER
     Dosage: UNIT DOSE: 75 MG
     Route: 048
     Dates: start: 19920101
  4. DIAMICRON [Concomitant]
     Indication: DIABETES MELLITUS
     Dosage: UNIT DOSE: 30 MG
     Route: 048
     Dates: start: 20060101
  5. CAPOTEN [Concomitant]
     Indication: HYPERTENSION
     Dosage: UNIT DOSE: 25 MG
     Route: 048
     Dates: start: 20040101
  6. DIOVAN [Concomitant]
     Indication: HYPERTENSION
     Route: 048
     Dates: start: 20080601
  7. HIDRION [Concomitant]
     Indication: HYPERTENSION
     Route: 048
     Dates: start: 19980101

REACTIONS (3)
  - FALL [None]
  - INTERVERTEBRAL DISC PROTRUSION [None]
  - SPINAL FRACTURE [None]
